FAERS Safety Report 14111541 (Version 1)
Quarter: 2017Q4

REPORT INFORMATION
  Report Type: Spontaneous
  Country: US (occurrence: US)
  Receive Date: 20171020
  Receipt Date: 20171020
  Transmission Date: 20180321
  Serious: Yes (Other)
  Sender: FDA-Public Use
  Company Number: US-FRESENIUS MEDICAL CARE RENAL THERAPIES GROUP-FMC-1709-001177

PATIENT
  Age: 63 Year
  Sex: Male

DRUGS (8)
  1. ATORVASTATIN [Concomitant]
     Active Substance: ATORVASTATIN
  2. MAGNESIUM OXIDE. [Concomitant]
     Active Substance: MAGNESIUM OXIDE
  3. VITAMIN D2 [Concomitant]
     Active Substance: ERGOCALCIFEROL
  4. SENSIPAR [Concomitant]
     Active Substance: CINACALCET HYDROCHLORIDE
  5. CALCIUM ACETATE. [Concomitant]
     Active Substance: CALCIUM ACETATE
  6. GENTAMICIN. [Concomitant]
     Active Substance: GENTAMICIN
  7. CALCITRIOL. [Concomitant]
     Active Substance: CALCITRIOL
  8. DELFLEX [Suspect]
     Active Substance: CALCIUM CHLORIDE\DEXTROSE\MAGNESIUM CHLORIDE\SODIUM CHLORIDE\SODIUM LACTATE
     Indication: END STAGE RENAL DISEASE
     Route: 033

REACTIONS (2)
  - Peritonitis bacterial [Recovering/Resolving]
  - Dyspnoea [Recovered/Resolved]

NARRATIVE: CASE EVENT DATE: 20170920
